FAERS Safety Report 11898788 (Version 1)
Quarter: 2016Q1

REPORT INFORMATION
  Report Type: Spontaneous
  Country: US (occurrence: US)
  Receive Date: 20160108
  Receipt Date: 20160108
  Transmission Date: 20160526
  Serious: No
  Sender: FDA-Public Use
  Company Number: US-SHIRE-US201600032

PATIENT
  Age: 83 Year
  Sex: Female
  Weight: 61.68 kg

DRUGS (1)
  1. GATTEX [Suspect]
     Active Substance: TEDUGLUTIDE\WATER
     Indication: INTESTINAL OBSTRUCTION
     Dosage: 0.31 ML, 1X/DAY:QD
     Route: 058
     Dates: start: 20151203

REACTIONS (3)
  - Haematuria [Unknown]
  - Off label use [Unknown]
  - Back pain [Unknown]

NARRATIVE: CASE EVENT DATE: 20151203
